FAERS Safety Report 19930571 (Version 2)
Quarter: 2024Q2

REPORT INFORMATION
  Report Type: Report from Study
  Country: PT (occurrence: PT)
  Receive Date: 20211008
  Receipt Date: 20240613
  Transmission Date: 20240716
  Serious: Yes (Other)
  Sender: FDA-Public Use
  Company Number: PT-EMA-DD-20210922-JOON_U1-130331

PATIENT
  Age: 41 Year
  Sex: Female

DRUGS (6)
  1. DESMOPRESSIN [Suspect]
     Active Substance: DESMOPRESSIN
     Indication: Product used for unknown indication
     Dosage: EXPOSED DURING SECOND TRIMESTER
     Route: 065
  2. EMTRICITABINE [Suspect]
     Active Substance: EMTRICITABINE
     Indication: Hepatitis B
     Route: 048
  3. TIVICAY [Suspect]
     Active Substance: DOLUTEGRAVIR SODIUM
     Indication: HIV infection
     Dosage: 50 MG, QD, EXPOSED DURING FIRST TRIMESTER
     Route: 048
  4. TENOFOVIR [Suspect]
     Active Substance: TENOFOVIR
     Indication: HIV infection
     Dosage: TENOFOVIR DISOPROXIL FUMARATE
     Route: 048
  5. SALINE [Concomitant]
     Active Substance: SODIUM CHLORIDE
     Indication: Product used for unknown indication
     Dosage: EXPOSED DURING SECOND TRIMESTER
     Route: 065
  6. DOLUTEGRAVIR [Suspect]
     Active Substance: DOLUTEGRAVIR
     Indication: Hepatitis B
     Dosage: 50 MILLIGRAM, QD
     Route: 048

REACTIONS (4)
  - Abortion induced [Recovered/Resolved]
  - Oligohydramnios [Recovered/Resolved]
  - Maternal exposure during pregnancy [Recovered/Resolved]
  - Foetal growth restriction [Not Recovered/Not Resolved]

NARRATIVE: CASE EVENT DATE: 20200101
